FAERS Safety Report 8222505-8 (Version None)
Quarter: 2012Q1

REPORT INFORMATION
  Report Type: 
  Country: None (occurrence: None)
  Receive Date: 20120320
  Receipt Date: 20120308
  Transmission Date: 20120608
  Serious: Yes (Hospitalization)
  Sender: FDA-Public Use
  Company Number: US-PFIZER INC-2012037607

PATIENT
  Sex: Female
  Weight: 50.794 kg

DRUGS (7)
  1. METFORMIN [Concomitant]
     Indication: DIABETES MELLITUS
     Dosage: 1000 MG, 1X/DAY
     Route: 048
     Dates: start: 20080101
  2. FESOTERODINE [Suspect]
     Indication: HYPERTONIC BLADDER
     Dosage: 4 MG, UNK
     Route: 048
     Dates: start: 20111117
  3. ASPIRIN [Concomitant]
     Indication: PROPHYLAXIS
     Dosage: 81 MG, 1X/DAY
     Route: 048
     Dates: start: 20060101
  4. GLYBURIDE [Concomitant]
     Indication: DIABETES MELLITUS
     Dosage: 2 MG, 1X/DAY
     Route: 048
     Dates: start: 20090101
  5. TYLENOL [Concomitant]
     Indication: PAIN IN EXTREMITY
     Dosage: 500 MG, 2X/DAY (PRN)
     Route: 048
     Dates: start: 20110901
  6. ATENOLOL [Concomitant]
     Indication: HYPERTENSION
     Dosage: 10 MG, 1X/DAY
     Route: 048
     Dates: start: 20080101
  7. PRAVASTATIN [Concomitant]
     Indication: HYPERCHOLESTEROLAEMIA
     Dosage: 40 MG, 1X/DAY
     Route: 048
     Dates: start: 20080101

REACTIONS (1)
  - SYNCOPE [None]
